FAERS Safety Report 5496473-6 (Version None)
Quarter: 2007Q4

REPORT INFORMATION
  Report Type: 
  Country: None (occurrence: None)
  Receive Date: 20071023
  Receipt Date: 20071023
  Transmission Date: 20080405
  Serious: Yes (Other)
  Sender: FDA-Public Use
  Company Number: None

PATIENT
  Age: 37 Year
  Sex: Male
  Weight: 88.6 kg

DRUGS (3)
  1. REVLIMID [Suspect]
     Indication: CHRONIC LYMPHOCYTIC LEUKAEMIA
     Dosage: 2.5 MG QD DAY1-21 PO
     Route: 048
     Dates: start: 20071015, end: 20071022
  2. FLUDARABINE PHOSPHATE [Suspect]
     Dosage: 25MG/M2 DAYS 1-3
  3. RITUXIMAB [Suspect]
     Dosage: 375MG/M2 DAYS 1 + 3

REACTIONS (1)
  - NEUTROPHIL COUNT DECREASED [None]
